FAERS Safety Report 5947247-0 (Version None)
Quarter: 2008Q4

REPORT INFORMATION
  Report Type: 
  Country: None (occurrence: None)
  Receive Date: 20081110
  Receipt Date: 20081104
  Transmission Date: 20090506
  Serious: Yes (Hospitalization)
  Sender: FDA-Public Use
  Company Number: NZ-B.I. PHARMACEUTICALS,INC./RIDGEFIELD-2008-DE-06428GD

PATIENT
  Age: 69 Year
  Sex: Female
  Weight: 115 kg

DRUGS (5)
  1. COMBIVENT [Suspect]
     Indication: ASTHMA
     Dosage: 100 MCG ALBUTEROL/20 MCG IPRATROPIUM FOR UP TO 12 PUFFS
     Route: 055
  2. PREDNISONE TAB [Suspect]
     Indication: ASTHMA
     Route: 048
  3. SYMBICORT [Suspect]
     Indication: ASTHMA
     Dosage: 200 MCG BUDESONIDE/6 MCG FORMOTEROL, 3 INHALATIONS TWICE DAILY
     Route: 055
  4. ALBUTEROL [Suspect]
     Indication: ASTHMA
     Dosage: 15MG
     Route: 055
  5. OMEPRAZOLE [Concomitant]

REACTIONS (3)
  - DRUG DEPENDENCE [None]
  - DRUG EFFECT DECREASED [None]
  - INCORRECT DOSE ADMINISTERED [None]
